FAERS Safety Report 7042014-1 (Version None)
Quarter: 2010Q4

REPORT INFORMATION
  Report Type: 
  Country: None (occurrence: None)
  Receive Date: 20101013
  Receipt Date: 20090901
  Transmission Date: 20110411
  Serious: No
  Sender: FDA-Public Use
  Company Number: US-ASTRAZENECA-2009SE11102

PATIENT
  Age: 73 Year
  Sex: Female
  Weight: 61.2 kg

DRUGS (4)
  1. SYMBICORT [Suspect]
     Dosage: 640 UG IS THE TOTAL DAILY DOSE
     Route: 055
     Dates: start: 20090701, end: 20090701
  2. SYMBICORT [Suspect]
     Dosage: 640 UG IS THE TOTAL DAILY DOSE
     Route: 055
     Dates: start: 20090701
  3. PROAIR HFA [Concomitant]
  4. SPIRIVA [Concomitant]

REACTIONS (3)
  - LIP SWELLING [None]
  - SWELLING FACE [None]
  - THROAT TIGHTNESS [None]
